FAERS Safety Report 5654395-1 (Version None)
Quarter: 2008Q1

REPORT INFORMATION
  Report Type: 
  Country: None (occurrence: None)
  Receive Date: 20080306
  Receipt Date: 20080229
  Transmission Date: 20080703
  Serious: No
  Sender: FDA-Public Use
  Company Number: US-BAXTER-2008BH001788

PATIENT
  Age: 38 Year
  Sex: Female
  Weight: 113 kg

DRUGS (3)
  1. HEPARIN SODIUM [Suspect]
     Indication: THROMBOSIS
     Route: 058
     Dates: start: 20080101, end: 20080229
  2. VITAMIN TAB [Concomitant]
     Indication: DRUG USE FOR UNKNOWN INDICATION
     Dosage: DOSE UNIT:UNKNOWN
     Route: 048
  3. CALCIUM [Concomitant]
     Indication: DRUG USE FOR UNKNOWN INDICATION
     Dosage: DOSE UNIT:UNKNOWN
     Route: 048

REACTIONS (5)
  - DRUG EXPOSURE DURING PREGNANCY [None]
  - INJECTION SITE IRRITATION [None]
  - NAUSEA [None]
  - PHARMACEUTICAL PRODUCT COMPLAINT [None]
  - VOMITING [None]
